FAERS Safety Report 23704901 (Version 1)
Quarter: 2024Q2

REPORT INFORMATION
  Report Type: Spontaneous
  Country: FR (occurrence: FR)
  Receive Date: 20240404
  Receipt Date: 20240404
  Transmission Date: 20240716
  Serious: Yes (Other)
  Sender: FDA-Public Use
  Company Number: FR-AUROBINDO-AUR-APL-2024-014638

PATIENT
  Age: 34 Year
  Sex: Male

DRUGS (4)
  1. PREDNISONE [Suspect]
     Active Substance: PREDNISONE
     Indication: Disseminated tuberculosis
     Dosage: 100 MILLIGRAM, ONCE A DAY
     Route: 065
  2. CERTOLIZUMAB PEGOL [Suspect]
     Active Substance: CERTOLIZUMAB PEGOL
     Indication: Ankylosing spondylitis
     Dosage: EVERY 2 WEEKS AT ATHE AGE OF 28
     Route: 065
  3. ETHAMBUTOL [Suspect]
     Active Substance: ETHAMBUTOL HYDROCHLORIDE
     Indication: Disseminated tuberculosis
     Dosage: 2 DOSAGE FORM (500 MG)
     Route: 065
  4. ISONIAZID\PYRAZINAMIDE\RIFAMPIN [Suspect]
     Active Substance: ISONIAZID\PYRAZINAMIDE\RIFAMPIN
     Indication: Disseminated tuberculosis
     Dosage: 6 DOSAGE FORM (300,50,120 MG))
     Route: 065

REACTIONS (1)
  - Drug ineffective [Unknown]
